FAERS Safety Report 8804881 (Version 2)
Quarter: 2012Q4

REPORT INFORMATION
  Report Type: 
  Country: US (occurrence: US)
  Receive Date: 20120924
  Receipt Date: 20121218
  Transmission Date: 20130627
  Serious: No
  Sender: FDA-Public Use
  Company Number: US-ASTRAZENECA-2012SE70509

PATIENT
  Age: 50 Year
  Sex: Male
  Weight: 81.6 kg

DRUGS (2)
  1. SEROQUEL [Suspect]
     Indication: BIPOLAR DISORDER
     Route: 048
  2. ATIVAN [Concomitant]
     Indication: ANXIETY

REACTIONS (10)
  - Activities of daily living impaired [Not Recovered/Not Resolved]
  - Aggression [Unknown]
  - Bipolar I disorder [Unknown]
  - Insomnia [Not Recovered/Not Resolved]
  - Malaise [Unknown]
  - Mania [Not Recovered/Not Resolved]
  - Psychotic disorder [Unknown]
  - Speech disorder [Not Recovered/Not Resolved]
  - Stress [Unknown]
  - Drug dose omission [Not Recovered/Not Resolved]
